FAERS Safety Report 6227701-7 (Version None)
Quarter: 2009Q2

REPORT INFORMATION
  Report Type: 
  Country: None (occurrence: None)
  Receive Date: 20090612
  Receipt Date: 20090610
  Transmission Date: 20091009
  Serious: Yes (Other)
  Sender: FDA-Public Use
  Company Number: A0790056A

PATIENT
  Age: 80 Year
  Sex: Female

DRUGS (1)
  1. ALLI [Suspect]
     Indication: WEIGHT CONTROL
     Route: 048

REACTIONS (14)
  - ANOREXIA [None]
  - ANXIETY [None]
  - ASTHENIA [None]
  - CONSTIPATION [None]
  - DEHYDRATION [None]
  - DYSPHONIA [None]
  - ESCHERICHIA URINARY TRACT INFECTION [None]
  - FREQUENT BOWEL MOVEMENTS [None]
  - MALAISE [None]
  - NAUSEA [None]
  - PROCTALGIA [None]
  - RENAL FAILURE ACUTE [None]
  - THIRST [None]
  - VOMITING [None]
